FAERS Safety Report 9922628 (Version 2)
Quarter: 2014Q1

REPORT INFORMATION
  Report Type: Spontaneous
  Country: US (occurrence: US)
  Receive Date: 20140225
  Receipt Date: 20140225
  Transmission Date: 20141002
  Serious: Yes (Other)
  Sender: FDA-Public Use
  Company Number: US-MYLANLABS-2013S1028382

PATIENT
  Age: 30 Year
  Sex: Male
  Weight: 83.01 kg

DRUGS (4)
  1. DIVALPROEX SODIUM EXTENDED-RELEASE TABLETS [Suspect]
     Indication: EPILEPSY
     Route: 048
     Dates: start: 201303, end: 201307
  2. DIVALPROEX SODIUM EXTENDED-RELEASE TABLETS [Suspect]
     Indication: EPILEPSY
     Route: 048
     Dates: start: 20130603, end: 201307
  3. KEPPRA [Suspect]
     Dates: start: 201307
  4. LAMICTAL [Suspect]
     Dates: start: 2013

REACTIONS (3)
  - Drug effect decreased [Not Recovered/Not Resolved]
  - Aura [Not Recovered/Not Resolved]
  - Muscle twitching [Not Recovered/Not Resolved]
